FAERS Safety Report 8989132 (Version 1)
Quarter: 2012Q4

REPORT INFORMATION
  Report Type: Spontaneous
  Country: FR (occurrence: None)
  Receive Date: 20121219
  Receipt Date: 20121219
  Transmission Date: 20130627
  Serious: Yes (Other)
  Sender: FDA-Public Use
  Company Number: 1520996

PATIENT
  Age: 80 Year
  Sex: Female

DRUGS (8)
  1. CARBOPLATIN [Suspect]
     Route: 042
     Dates: start: 20120823, end: 20120823
  2. PACLITAXEL [Suspect]
     Route: 042
     Dates: start: 20120823, end: 20120823
  3. BEVACIZUMAB [Suspect]
     Route: 042
     Dates: start: 20120823, end: 20120823
  4. RANITIDINE [Suspect]
     Route: 042
     Dates: start: 20120823, end: 20120823
  5. DEXAMETHASONE [Suspect]
     Route: 042
     Dates: start: 20120823, end: 20120823
  6. DEXCHLORPHENIRAMINE [Suspect]
     Route: 042
     Dates: start: 20120823, end: 20120823
  7. ONDANSETRON [Suspect]
     Route: 042
     Dates: start: 20120823, end: 20120823
  8. HYDROXYZINE [Suspect]
     Route: 042
     Dates: start: 20120823, end: 20120823

REACTIONS (4)
  - Malaise [None]
  - Face oedema [None]
  - Diarrhoea [None]
  - Hypotension [None]
